FAERS Safety Report 12499852 (Version 1)
Quarter: 2016Q2

REPORT INFORMATION
  Report Type: Report from Study
  Country: US (occurrence: US)
  Receive Date: 20160627
  Receipt Date: 20160627
  Transmission Date: 20160815
  Serious: Yes (Hospitalization)
  Sender: FDA-Public Use
  Company Number: US-MALLINCKRODT-T201602665

PATIENT
  Sex: Male

DRUGS (1)
  1. REPOSITORY CORTICOTROPIN INJECTION [Suspect]
     Active Substance: CORTICOTROPIN
     Indication: PROTEINURIA
     Dosage: 80 U/ 1ML   2X WEEK
     Route: 058
     Dates: start: 20160201

REACTIONS (2)
  - Asthenia [Not Recovered/Not Resolved]
  - Abdominal abscess [Not Recovered/Not Resolved]
